FAERS Safety Report 14261490 (Version 1)
Quarter: 2017Q4

REPORT INFORMATION
  Report Type: Report from Study
  Country: IN (occurrence: IN)
  Receive Date: 20171208
  Receipt Date: 20171208
  Transmission Date: 20180321
  Serious: Yes (Other)
  Sender: FDA-Public Use
  Company Number: IN-ROCHE-2035342

PATIENT

DRUGS (1)
  1. TENECTEPLASE [Suspect]
     Active Substance: TENECTEPLASE
     Indication: CARDIAC VALVE REPLACEMENT COMPLICATION
     Route: 040

REACTIONS (1)
  - Transient ischaemic attack [Unknown]
